FAERS Safety Report 9019977 (Version 1)
Quarter: 2013Q1

REPORT INFORMATION
  Report Type: Spontaneous
  Country: US (occurrence: US)
  Receive Date: 20130119
  Receipt Date: 20130119
  Transmission Date: 20140127
  Serious: No
  Sender: FDA-Public Use
  Company Number: US-ALLERGAN-1211825US

PATIENT
  Age: 20 Year
  Sex: Male

DRUGS (2)
  1. BOTOX COSMETIC [Suspect]
     Indication: HYPERHIDROSIS
     Dosage: 55 UNITS, SINGLE
     Route: 023
     Dates: start: 20120504, end: 20120504
  2. BOTOX COSMETIC [Suspect]
     Dosage: 45 UNITS, SINGLE
     Route: 058
     Dates: start: 20120504, end: 20120504

REACTIONS (4)
  - Incorrect dose administered [Unknown]
  - Incorrect dose administered [Unknown]
  - Therapeutic response decreased [Unknown]
  - Off label use [Unknown]
